FAERS Safety Report 10964273 (Version 2)
Quarter: 2015Q2

REPORT INFORMATION
  Report Type: Spontaneous
  Country: US (occurrence: US)
  Receive Date: 20150329
  Receipt Date: 20150524
  Transmission Date: 20150821
  Serious: Yes (Other)
  Sender: FDA-Public Use
  Company Number: US-JNJFOC-20131017095

PATIENT
  Age: 48 Year
  Sex: Female
  Weight: 70.8 kg

DRUGS (8)
  1. AMITRIPTYLINE [Concomitant]
     Active Substance: AMITRIPTYLINE
     Indication: PRODUCT USED FOR UNKNOWN INDICATION
     Route: 048
     Dates: start: 20121124
  2. TIZANIDINE (TIZANIDINE) [Concomitant]
     Active Substance: TIZANIDINE
     Indication: PRODUCT USED FOR UNKNOWN INDICATION
     Route: 048
     Dates: start: 20121124
  3. TOPIRAMATE. [Concomitant]
     Active Substance: TOPIRAMATE
     Indication: PRODUCT USED FOR UNKNOWN INDICATION
     Route: 048
     Dates: start: 20121124
  4. TOPIRAMATE. [Concomitant]
     Active Substance: TOPIRAMATE
     Indication: PRODUCT USED FOR UNKNOWN INDICATION
     Route: 048
     Dates: start: 20121124
  5. METHADONE [Concomitant]
     Active Substance: METHADONE HYDROCHLORIDE
     Indication: PRODUCT USED FOR UNKNOWN INDICATION
     Dosage: AS NEEDED
     Route: 048
     Dates: start: 20130103
  6. OXYCODONE [Concomitant]
     Active Substance: OXYCODONE
     Indication: PRODUCT USED FOR UNKNOWN INDICATION
     Dosage: 7.5-15MG, AS NEEDED
     Route: 048
     Dates: start: 20130927
  7. DIAZEPAM. [Concomitant]
     Active Substance: DIAZEPAM
     Indication: PRODUCT USED FOR UNKNOWN INDICATION
     Dosage: AS NEEDED
     Route: 065
  8. DURAGESIC [Suspect]
     Active Substance: FENTANYL
     Indication: BACK PAIN
     Dosage: STARTED BEFORE 04-NOV-2012
     Route: 062
     Dates: start: 20070501

REACTIONS (3)
  - Product quality issue [Unknown]
  - Withdrawal syndrome [Unknown]
  - Intentional product misuse [Unknown]

NARRATIVE: CASE EVENT DATE: 201310
